FAERS Safety Report 25293709 (Version 5)
Quarter: 2025Q2

REPORT INFORMATION
  Report Type: Spontaneous
  Country: US (occurrence: US)
  Receive Date: 20250510
  Receipt Date: 20250619
  Transmission Date: 20250717
  Serious: Yes (Hospitalization, Other)
  Sender: SANOFI AVENTIS
  Company Number: US-SANOFI-02506012

PATIENT
  Age: 41 Year
  Sex: Female
  Weight: 72 kg

DRUGS (21)
  1. CABLIVI [Suspect]
     Active Substance: CAPLACIZUMAB-YHDP
     Indication: Thrombotic thrombocytopenic purpura
     Dosage: 11 MG, QD
     Route: 058
     Dates: start: 20250416, end: 20250418
  2. CABLIVI [Suspect]
     Active Substance: CAPLACIZUMAB-YHDP
     Indication: Thrombotic thrombocytopenic purpura
     Dosage: 11 MG, QD
     Route: 058
     Dates: start: 20250416, end: 20250418
  3. CABLIVI [Suspect]
     Active Substance: CAPLACIZUMAB-YHDP
     Indication: Thrombotic thrombocytopenic purpura
     Dosage: 11 MG, QD
     Route: 058
     Dates: start: 20250416, end: 20250418
  4. CABLIVI [Suspect]
     Active Substance: CAPLACIZUMAB-YHDP
     Indication: Thrombotic thrombocytopenic purpura
     Dosage: 11 MG, QD
     Route: 058
     Dates: start: 20250416, end: 20250418
  5. HUMAN PLASMA [Concomitant]
     Active Substance: HUMAN PLASMA
     Dates: start: 20250416, end: 20250418
  6. MAGNESIUM SULFATE [Concomitant]
     Active Substance: MAGNESIUM SULFATE
  7. PANTOPRAZOLE [Concomitant]
     Active Substance: PANTOPRAZOLE
     Dosage: 40 MG, BID
     Route: 048
  8. PREDNISONE [Concomitant]
     Active Substance: PREDNISONE
     Dosage: 80 MG, QD
  9. CALCIUM GLUCONATE [Concomitant]
     Active Substance: CALCIUM GLUCONATE
  10. INSULIN ASPART [Concomitant]
     Active Substance: INSULIN ASPART
  11. NORCO [Concomitant]
     Active Substance: ACETAMINOPHEN\HYDROCODONE BITARTRATE
  12. BUDESONIDE [Concomitant]
     Active Substance: BUDESONIDE
  13. RITUXIMAB [Concomitant]
     Active Substance: RITUXIMAB
     Dosage: 652.5 MG, QW
     Route: 042
     Dates: start: 20250418
  14. BACTRIM [Concomitant]
     Active Substance: SULFAMETHOXAZOLE\TRIMETHOPRIM
     Indication: Prophylaxis
     Dosage: 1 DF, QD
     Dates: start: 20250423
  15. HYDROXYCHLOROQUINE SULFATE [Concomitant]
     Active Substance: HYDROXYCHLOROQUINE SULFATE
     Dosage: 400 MG, QD WITH BREAKFAST
     Dates: start: 20250423
  16. CETIRIZINE HYDROCHLORIDE [Concomitant]
     Active Substance: CETIRIZINE HYDROCHLORIDE
     Dosage: 10 MG, QD
     Route: 048
     Dates: start: 20250423
  17. WIXELA INHUB [Concomitant]
     Active Substance: FLUTICASONE PROPIONATE\SALMETEROL XINAFOATE
     Dosage: 1 DF (INHALATION), BID; RINSE MOUTH AND THROAT AFTER USE
     Route: 055
  18. FOLATE SODIUM [Concomitant]
     Active Substance: FOLATE SODIUM
     Indication: Red blood cell count decreased
     Dosage: 1 MG, QD
     Route: 048
     Dates: start: 20250423
  19. LIDOCAINE [Concomitant]
     Active Substance: LIDOCAINE
     Dosage: 1 DF (PATCH), QD
     Route: 062
     Dates: start: 20250423
  20. MONTELUKAST [Concomitant]
     Active Substance: MONTELUKAST
     Dosage: 10 MG, QD
     Route: 048
  21. POLYETHYLENE GLYCOL 3350 [Concomitant]
     Active Substance: POLYETHYLENE GLYCOL 3350
     Dosage: 17 G, QD
     Route: 048
     Dates: start: 20250423

REACTIONS (6)
  - Acute kidney injury [Recovering/Resolving]
  - Condition aggravated [Recovering/Resolving]
  - Systemic lupus erythematosus [Unknown]
  - Subcapsular renal haematoma [Recovered/Resolved]
  - Post procedural haematoma [Recovered/Resolved]
  - Post procedural haemorrhage [Recovered/Resolved]

NARRATIVE: CASE EVENT DATE: 20250401
